FAERS Safety Report 10451249 (Version 2)
Quarter: 2014Q4

REPORT INFORMATION
  Report Type: Spontaneous
  Country: US (occurrence: US)
  Receive Date: 20140912
  Receipt Date: 20141218
  Transmission Date: 20150528
  Serious: No
  Sender: FDA-Public Use
  Company Number: US-GALDERMA-US14003031

PATIENT
  Age: 52 Year
  Sex: Female

DRUGS (15)
  1. MIRVASO [Suspect]
     Active Substance: BRIMONIDINE TARTRATE
  2. ESTRADIOL PATCH [Concomitant]
     Indication: OSTEOPENIA
     Dosage: 0.025 MG
     Route: 062
  3. MIRVASO [Suspect]
     Active Substance: BRIMONIDINE TARTRATE
     Indication: ROSACEA
     Dosage: 0.33%
     Route: 061
     Dates: start: 20140802, end: 20140811
  4. UNKNOWN SUNSCREEN SPF 50 [Concomitant]
     Indication: PROPHYLAXIS AGAINST SOLAR RADIATION
     Route: 061
     Dates: start: 20140801, end: 20140810
  5. KLONOPIN [Concomitant]
     Active Substance: CLONAZEPAM
     Indication: INSOMNIA
     Dosage: 4 MG
     Route: 048
  6. NADOLOL. [Concomitant]
     Active Substance: NADOLOL
     Indication: ATRIAL FIBRILLATION
     Dosage: 40 MG
     Route: 048
  7. CERAVE FOAMING WASH [Concomitant]
     Indication: THERAPEUTIC SKIN CARE TOPICAL
     Route: 061
  8. OPTIZINC [Concomitant]
     Indication: ACNE
     Dosage: 30 MG
     Route: 048
  9. OPTIZINC [Concomitant]
     Indication: SEBORRHOEA
  10. SPIRONOLACTONE. [Concomitant]
     Active Substance: SPIRONOLACTONE
     Indication: HYPERTENSION
     Dosage: 100 MG
     Route: 048
  11. CYMBALTA [Concomitant]
     Active Substance: DULOXETINE HYDROCHLORIDE
     Indication: DEPRESSION
     Dosage: 160 MG
     Route: 048
  12. CERAVE PM MOISTURIZER [Concomitant]
     Active Substance: HYALURONIC ACID
     Indication: DRY SKIN PROPHYLAXIS
     Route: 061
  13. NIACINAMIDE CREAM 4% [Concomitant]
     Dosage: 4%
     Route: 061
     Dates: start: 2011
  14. VITAMIN B 12 INJECTIONS [Concomitant]
     Indication: PERNICIOUS ANAEMIA
     Route: 030
  15. ORACEA [Concomitant]
     Active Substance: DOXYCYCLINE
     Indication: MEIBOMIAN GLAND DYSFUNCTION
     Dosage: 40 MG
     Route: 048

REACTIONS (7)
  - Swelling face [Recovered/Resolved]
  - Condition aggravated [Recovered/Resolved]
  - Rash macular [Recovered/Resolved]
  - Emotional distress [Recovered/Resolved]
  - Erythema [Recovered/Resolved]
  - Product use issue [Recovered/Resolved]
  - Nasal congestion [Recovered/Resolved]

NARRATIVE: CASE EVENT DATE: 201408
